FAERS Safety Report 5084449-2 (Version None)
Quarter: 2006Q3

REPORT INFORMATION
  Report Type: 
  Country: None (occurrence: None)
  Receive Date: 20060821
  Receipt Date: 20060815
  Transmission Date: 20061208
  Serious: Yes (Life-Threatening)
  Sender: FDA-Public Use
  Company Number: RU-GLAXOSMITHKLINE-B0434745A

PATIENT
  Age: 9 Year
  Sex: Male
  Weight: 28 kg

DRUGS (2)
  1. LAMICTAL [Suspect]
     Indication: EPILEPSY
     Dosage: 25MG PER DAY
     Route: 065
     Dates: start: 20060721, end: 20060812
  2. DEPAKENE [Concomitant]
     Indication: EPILEPSY
     Dosage: 1250MG PER DAY
     Route: 065
     Dates: start: 20060422

REACTIONS (3)
  - BRONCHOSPASM [None]
  - DERMATITIS ALLERGIC [None]
  - FACE OEDEMA [None]
